FAERS Safety Report 11465129 (Version 3)
Quarter: 2019Q2

REPORT INFORMATION
  Report Type: Spontaneous
  Country: US (occurrence: US)
  Receive Date: 20150907
  Receipt Date: 20190412
  Transmission Date: 20190711
  Serious: No
  Sender: FDA-Public Use
  Company Number: US-ASTRAZENECA-2015SE82123

PATIENT
  Age: 709 Month
  Sex: Male
  Weight: 94.3 kg

DRUGS (10)
  1. MOVANTIK [Suspect]
     Active Substance: NALOXEGOL OXALATE
     Indication: IMPAIRED GASTRIC EMPTYING
     Route: 048
  2. MOVANTIK [Suspect]
     Active Substance: NALOXEGOL OXALATE
     Indication: ABDOMINAL DISCOMFORT
     Route: 048
  3. CYMBALTA [Concomitant]
     Active Substance: DULOXETINE HYDROCHLORIDE
     Indication: NEURALGIA
     Route: 048
  4. IBUPROFEN. [Concomitant]
     Active Substance: IBUPROFEN
     Indication: INFLAMMATION
     Route: 048
  5. MOVANTIK [Suspect]
     Active Substance: NALOXEGOL OXALATE
     Indication: IMPAIRED GASTRIC EMPTYING
     Route: 048
     Dates: start: 20150810
  6. NORTRIPTYLINE [Concomitant]
     Active Substance: NORTRIPTYLINE
     Indication: NEURALGIA
     Route: 048
  7. MOVANTIK [Suspect]
     Active Substance: NALOXEGOL OXALATE
     Indication: ABDOMINAL DISCOMFORT
     Route: 048
     Dates: start: 20150810
  8. METHADONE [Concomitant]
     Active Substance: METHADONE HYDROCHLORIDE
     Indication: NEURALGIA
     Route: 048
  9. FISH OIL [Concomitant]
     Active Substance: FISH OIL
     Route: 065
     Dates: start: 201903
  10. FENTANYL. [Concomitant]
     Active Substance: FENTANYL
     Indication: NEURALGIA
     Dosage: 75.0UG UNKNOWN
     Route: 061

REACTIONS (4)
  - Therapeutic product effect decreased [Unknown]
  - Infrequent bowel movements [Unknown]
  - Faeces hard [Unknown]
  - Product use issue [Unknown]

NARRATIVE: CASE EVENT DATE: 201508
